FAERS Safety Report 9374744 (Version 3)
Quarter: 2013Q3

REPORT INFORMATION
  Report Type: Spontaneous
  Country: DE (occurrence: DE)
  Receive Date: 20130628
  Receipt Date: 20130910
  Transmission Date: 20140515
  Serious: Yes (Life-Threatening, Hospitalization)
  Sender: FDA-Public Use
  Company Number: DE-JNJFOC-20130615515

PATIENT
  Age: 54 Year
  Sex: Male

DRUGS (5)
  1. PREZISTA [Suspect]
     Indication: HIV INFECTION
     Route: 065
  2. PREZISTA [Suspect]
     Indication: HIV INFECTION
     Route: 065
     Dates: start: 20130527, end: 20130612
  3. PREZISTA [Suspect]
     Indication: HIV INFECTION
     Dosage: DAILY DOSE WAS 800 MG
     Route: 065
     Dates: start: 201004, end: 20130526
  4. KIVEXA [Concomitant]
     Indication: HIV INFECTION
     Route: 065
     Dates: start: 201110
  5. NORVIR [Concomitant]
     Indication: HIV INFECTION
     Dosage: 100
     Route: 065
     Dates: start: 201004

REACTIONS (1)
  - Anaphylactic reaction [Recovered/Resolved]
